FAERS Safety Report 11615752 (Version 1)
Quarter: 2015Q4

REPORT INFORMATION
  Report Type: Spontaneous
  Country: None (occurrence: None)
  Receive Date: 20151008
  Receipt Date: 20151008
  Transmission Date: 20160304
  Serious: Yes (Other)
  Sender: FDA-Public Use
  Company Number: None

PATIENT
  Sex: Male

DRUGS (4)
  1. CBD [Suspect]
     Active Substance: CANNABIDIOL
     Indication: SMOKING CESSATION THERAPY
  2. HEMP OIL [Suspect]
     Active Substance: CANNABIS SATIVA SEED OIL
  3. MARIJUANA [Suspect]
     Active Substance: CANNABIS SATIVA SUBSP. INDICA TOP
  4. E-LIQUIDS FOR ELECTRONIC CIGARETTES [Suspect]
     Active Substance: NICOTINE
     Indication: SMOKING CESSATION THERAPY

REACTIONS (1)
  - Product quality issue [None]

NARRATIVE: CASE EVENT DATE: 20150901
